FAERS Safety Report 16905791 (Version 1)
Quarter: 2019Q4

REPORT INFORMATION
  Report Type: Spontaneous
  Country: US (occurrence: US)
  Receive Date: 20191010
  Receipt Date: 20191010
  Transmission Date: 20200122
  Serious: No
  Sender: FDA-Public Use
  Company Number: US-TEVA-2019-US-1118673

PATIENT
  Age: 74 Year
  Sex: Female

DRUGS (2)
  1. CLONAZEPAM TABLET ACTAVIS [Suspect]
     Active Substance: CLONAZEPAM
     Indication: SEIZURE
     Route: 065
     Dates: start: 201710
  2. TEGRETOL [Concomitant]
     Active Substance: CARBAMAZEPINE
     Route: 065

REACTIONS (9)
  - Somnolence [Unknown]
  - Dizziness [Unknown]
  - Memory impairment [Unknown]
  - Wrong technique in product usage process [Unknown]
  - Constipation [Unknown]
  - Anxiety [Unknown]
  - Depression [Unknown]
  - Product substitution issue [Unknown]
  - Coordination abnormal [Unknown]

NARRATIVE: CASE EVENT DATE: 2019
